FAERS Safety Report 23704910 (Version 1)
Quarter: 2024Q2

REPORT INFORMATION
  Report Type: Spontaneous
  Country: NL (occurrence: NL)
  Receive Date: 20240404
  Receipt Date: 20240404
  Transmission Date: 20240715
  Serious: Yes (Other)
  Sender: FDA-Public Use
  Company Number: None

PATIENT

DRUGS (4)
  1. GOSERELIN [Suspect]
     Active Substance: GOSERELIN
     Indication: Prostate cancer
     Dosage: UNK
     Route: 058
     Dates: start: 20000101
  2. ZOLADEX [Suspect]
     Active Substance: GOSERELIN ACETATE
     Indication: Prostate cancer
     Dosage: UNK
     Route: 065
  3. SIMVASTATIN [Concomitant]
     Active Substance: SIMVASTATIN
     Indication: Product used for unknown indication
     Dosage: 100MG AND 40MG
     Route: 065
  4. CARBASPIRIN [Concomitant]
     Active Substance: CARBASPIRIN
     Indication: Product used for unknown indication
     Dosage: 100MG AND 40MG
     Route: 065

REACTIONS (2)
  - Dacryostenosis acquired [Recovering/Resolving]
  - Corneal lesion [Recovering/Resolving]
